FAERS Safety Report 4357076-X (Version None)
Quarter: 2004Q2

REPORT INFORMATION
  Report Type: 
  Country: None (occurrence: None)
  Receive Date: 20040512
  Receipt Date: 20040503
  Transmission Date: 20050107
  Serious: Yes (Hospitalization)
  Sender: FDA-Public Use
  Company Number: US-ROCHE-366534

PATIENT
  Age: 44 Year
  Sex: Female
  Weight: 63.5 kg

DRUGS (2)
  1. XELODA [Suspect]
     Indication: BREAST CANCER
     Route: 048
     Dates: start: 20040420, end: 20040430
  2. COUMADIN [Concomitant]
     Route: 048
     Dates: start: 20040215

REACTIONS (3)
  - ABDOMINAL PAIN [None]
  - NAUSEA [None]
  - PLEURAL EFFUSION [None]
